FAERS Safety Report 15083414 (Version 1)
Quarter: 2018Q2

REPORT INFORMATION
  Report Type: Spontaneous
  Country: AU (occurrence: AU)
  Receive Date: 20180628
  Receipt Date: 20180628
  Transmission Date: 20180711
  Serious: Yes (Other)
  Sender: FDA-Public Use
  Company Number: AU-MYLANLABS-2018M1046291

PATIENT
  Age: 4 Decade
  Sex: Female
  Weight: 125 kg

DRUGS (7)
  1. CYCLOSPORIN [Concomitant]
     Active Substance: CYCLOSPORINE
     Indication: PYODERMA GANGRENOSUM
     Route: 065
  2. METHOTREXATE. [Concomitant]
     Active Substance: METHOTREXATE
     Indication: PYODERMA GANGRENOSUM
     Route: 065
  3. IMMUNOGLOBULIN                     /00025201/ [Concomitant]
     Active Substance: HUMAN IMMUNOGLOBULIN G
     Indication: PYODERMA GANGRENOSUM
     Route: 042
  4. MYCOPHENOLATE MOFETIL. [Concomitant]
     Active Substance: MYCOPHENOLATE MOFETIL
     Indication: PYODERMA GANGRENOSUM
     Route: 065
  5. PREDNISOLONE. [Suspect]
     Active Substance: PREDNISOLONE
     Indication: PYODERMA GANGRENOSUM
     Route: 048
     Dates: start: 201511
  6. OXYGEN. [Concomitant]
     Active Substance: OXYGEN
     Indication: PYODERMA GANGRENOSUM
     Route: 065
  7. INFLIXIMAB [Concomitant]
     Active Substance: INFLIXIMAB
     Indication: PYODERMA GANGRENOSUM
     Route: 065

REACTIONS (3)
  - Diabetes mellitus [Recovering/Resolving]
  - Central obesity [Unknown]
  - Osteoporosis [Unknown]
